FAERS Safety Report 4427145-4 (Version None)
Quarter: 2004Q3

REPORT INFORMATION
  Report Type: 
  Country: None (occurrence: None)
  Receive Date: 20040726
  Receipt Date: 20040428
  Transmission Date: 20050211
  Serious: No
  Sender: FDA-Public Use
  Company Number: USA040465886

PATIENT
  Age: 69 Year
  Sex: Female
  Weight: 82 kg

DRUGS (6)
  1. FORTEO [Suspect]
     Indication: OSTEOPOROSIS
     Dosage: 20 UG DAY
     Dates: start: 20040423
  2. EVISTA [Concomitant]
  3. CLARINEX [Concomitant]
  4. HYDROCHLOROTHIAZIDE [Concomitant]
  5. VITAMINS NOS [Concomitant]
  6. BEXTRA [Concomitant]

REACTIONS (4)
  - HYPOKINESIA [None]
  - INJECTION SITE ERYTHEMA [None]
  - MUSCULOSKELETAL STIFFNESS [None]
  - PAIN [None]
